FAERS Safety Report 10874998 (Version 3)
Quarter: 2015Q4

REPORT INFORMATION
  Report Type: Report from Study
  Country: PH (occurrence: PH)
  Receive Date: 20150227
  Receipt Date: 20151211
  Transmission Date: 20160304
  Serious: Yes (Death, Life-Threatening, Hospitalization)
  Sender: FDA-Public Use
  Company Number: PH-EISAI MEDICAL RESEARCH-EC-2014-000464

PATIENT
  Age: 59 Year
  Sex: Male
  Weight: 67.7 kg

DRUGS (2)
  1. LENVATINIB [Suspect]
     Active Substance: LENVATINIB
     Indication: HEPATOCELLULAR CARCINOMA
     Route: 048
     Dates: start: 20140906, end: 20140913
  2. LENVATINIB [Suspect]
     Active Substance: LENVATINIB
     Route: 048
     Dates: start: 20140916, end: 20140926

REACTIONS (3)
  - Hepatic cirrhosis [Not Recovered/Not Resolved]
  - Lung infection [Recovered/Resolved]
  - Oesophageal varices haemorrhage [Recovered/Resolved]

NARRATIVE: CASE EVENT DATE: 20140926
